FAERS Safety Report 10301618 (Version 3)
Quarter: 2014Q3

REPORT INFORMATION
  Report Type: Spontaneous
  Country: US (occurrence: None)
  Receive Date: 20140709
  Receipt Date: 20140806
  Transmission Date: 20150326
  Serious: Yes (Hospitalization, Other)
  Sender: FDA-Public Use
  Company Number: UNT-2014-003200

PATIENT
  Age: 77 Year
  Sex: Male
  Weight: 84.3 kg

DRUGS (3)
  1. TYVASO [Suspect]
     Active Substance: TREPROSTINIL
     Indication: PULMONARY ARTERIAL HYPERTENSION
     Route: 055
     Dates: start: 20130314
  2. REMODULIN [Suspect]
     Active Substance: TREPROSTINIL
     Indication: PULMONARY ARTERIAL HYPERTENSION
     Route: 058
     Dates: start: 20140620
  3. MACITENTAIN (MACITENTAN) [Concomitant]

REACTIONS (8)
  - Infusion site pain [None]
  - Dyspnoea [None]
  - Pleural effusion [None]
  - Vision blurred [None]
  - Pulmonary arterial hypertension [None]
  - Nausea [None]
  - Weight decreased [None]
  - Malaise [None]

NARRATIVE: CASE EVENT DATE: 20140227
